FAERS Safety Report 9506223 (Version 1)
Quarter: 2013Q1

REPORT INFORMATION
  Report Type: Spontaneous
  Country: US (occurrence: None)
  Receive Date: 20130301
  Receipt Date: 20130301
  Transmission Date: 20140127
  Serious: Yes (Death)
  Sender: FDA-Public Use
  Company Number: RB-41402-2012

PATIENT
  Sex: Male

DRUGS (3)
  1. SUBOXONE [Suspect]
     Indication: DRUG DEPENDENCE
     Dosage: 6X/DAY SUBLINGUAL
     Route: 060
     Dates: start: 201009, end: 201105
  2. HEROIN [Suspect]
     Indication: DRUG DEPENDENCE
  3. HEROIN [Suspect]
     Indication: DRUG DEPENDENCE
     Route: 042
     Dates: start: 201206, end: 201206

REACTIONS (1)
  - Overdose [None]
